FAERS Safety Report 6740624-X (Version None)
Quarter: 2010Q2

REPORT INFORMATION
  Report Type: 
  Country: None (occurrence: None)
  Receive Date: 20100521
  Receipt Date: 20100506
  Transmission Date: 20101027
  Serious: Yes (Hospitalization)
  Sender: FDA-Public Use
  Company Number: 004036

PATIENT
  Sex: Female

DRUGS (10)
  1. VIMPAT [Suspect]
     Dosage: (100 MG BID ORAL)
     Route: 048
     Dates: start: 20091223
  2. LEVETIRACETAM [Suspect]
     Dosage: (1500 MG BID ORAL)
     Route: 048
  3. TOPIRAMATE [Concomitant]
  4. CLOBAZAM [Concomitant]
  5. BACLOFEN [Concomitant]
  6. GLYCOPYRROLATE /00196202/ [Concomitant]
  7. OMEPRAZOLE [Concomitant]
  8. LOPERAMIDE [Concomitant]
  9. PARACETAMOL [Concomitant]
  10. CODEINE SULFATE [Concomitant]

REACTIONS (7)
  - BLOOD ALBUMIN DECREASED [None]
  - DECUBITUS ULCER [None]
  - GENERAL PHYSICAL HEALTH DETERIORATION [None]
  - MALAISE [None]
  - OSTEONECROSIS [None]
  - PNEUMONIA [None]
  - SEPSIS [None]
